FAERS Safety Report 20219621 (Version 1)
Quarter: 2021Q4

REPORT INFORMATION
  Report Type: Report from Study
  Country: US (occurrence: US)
  Receive Date: 20211222
  Receipt Date: 20211222
  Transmission Date: 20220303
  Serious: Yes (Death, Hospitalization, Disabling, Other)
  Sender: FDA-Public Use
  Company Number: US-009507513-2112USA003569

PATIENT
  Sex: Male
  Weight: 72.4 kg

DRUGS (22)
  1. KEYTRUDA [Suspect]
     Active Substance: PEMBROLIZUMAB
     Indication: Prostate cancer metastatic
     Dosage: 200 MILLIGRAM, EVERY 21 DAYS
     Dates: start: 20210118
  2. KEYTRUDA [Suspect]
     Active Substance: PEMBROLIZUMAB
     Dosage: 200 MILLIGRAM, EVERY 21 DAYS
     Dates: start: 20210208
  3. ELIGARD [Suspect]
     Active Substance: LEUPROLIDE ACETATE
     Indication: Prostate cancer metastatic
     Dosage: UNK
  4. ELIQUIS [Concomitant]
     Active Substance: APIXABAN
     Indication: Atrial fibrillation
     Dosage: 2.5 MILLIGRAM, BID, BY MOUTH
     Route: 048
  5. ELIQUIS [Concomitant]
     Active Substance: APIXABAN
     Indication: Coronary artery disease
  6. CALCIUM\VITAMIN D [Concomitant]
     Active Substance: CALCIUM\VITAMIN D
     Indication: Osteopenia
  7. NORVASC [Concomitant]
     Active Substance: AMLODIPINE BESYLATE
     Dosage: 10 MILLIGRAM, QD, BY MOUTH
     Route: 048
  8. ZOLADEX [Concomitant]
     Active Substance: GOSERELIN ACETATE
  9. LEVOXYL [Concomitant]
     Active Substance: LEVOTHYROXINE SODIUM
     Dosage: 0.05 MILLIGRAM, QD
     Route: 048
  10. LORATADINE [Concomitant]
     Active Substance: LORATADINE
     Dosage: 10 MILLIGRAM, QD BY MOUTH
     Route: 048
  11. LEXAPRO [Concomitant]
     Active Substance: ESCITALOPRAM OXALATE
     Dosage: 5 MILLIGRAM, QD, BY MOUTH
     Route: 048
  12. MYRBETRIQ [Concomitant]
     Active Substance: MIRABEGRON
     Dosage: 25 MILLIGRAM, QD BY MOUTH
     Route: 048
  13. PROTONIX [Concomitant]
     Active Substance: PANTOPRAZOLE SODIUM
     Dosage: 40 MILLIGRAM
     Route: 048
  14. DEMADEX [Concomitant]
     Active Substance: TORSEMIDE
     Dosage: 5 MILLIGRAM, AS NEEDED
     Route: 048
  15. TROSPIUM [Concomitant]
     Active Substance: TROSPIUM
     Route: 048
  16. VITAMIN C [Concomitant]
     Active Substance: ASCORBIC ACID
  17. CEPHALEXIN [Concomitant]
     Active Substance: CEPHALEXIN
  18. LUTEIN + [Concomitant]
  19. VITAMINS [Concomitant]
     Active Substance: VITAMINS
  20. POTASSIUM CHLORIDE [Concomitant]
     Active Substance: POTASSIUM CHLORIDE
  21. TRAMADOL HYDROCHLORIDE [Concomitant]
     Active Substance: TRAMADOL HYDROCHLORIDE
  22. COD LIVER OIL [Concomitant]
     Active Substance: COD LIVER OIL

REACTIONS (28)
  - Death [Fatal]
  - Cholangitis acute [Unknown]
  - Immune-mediated hepatitis [Unknown]
  - Philadelphia chromosome positive [Unknown]
  - Mobility decreased [Not Recovered/Not Resolved]
  - Increased tendency to bruise [Unknown]
  - Fatigue [Unknown]
  - Malaise [Unknown]
  - Hot flush [Unknown]
  - Pollakiuria [Recovering/Resolving]
  - Stress urinary incontinence [Recovering/Resolving]
  - Back pain [Unknown]
  - Arthralgia [Unknown]
  - Asthenia [Unknown]
  - Red blood cell count decreased [Unknown]
  - Haemoglobin decreased [Unknown]
  - Haematocrit decreased [Unknown]
  - Mean cell volume increased [Unknown]
  - Mean cell haemoglobin increased [Unknown]
  - Red cell distribution width increased [Unknown]
  - Blood glucose increased [Unknown]
  - Blood urea increased [Unknown]
  - Blood sodium decreased [Unknown]
  - Protein total decreased [Unknown]
  - Blood albumin decreased [Unknown]
  - Prostatic specific antigen increased [Unknown]
  - Skin warm [Unknown]
  - Dry skin [Unknown]

NARRATIVE: CASE EVENT DATE: 20210101
